FAERS Safety Report 8571554-9 (Version None)
Quarter: 2012Q3

REPORT INFORMATION
  Report Type: 
  Country: None (occurrence: None)
  Receive Date: 20120806
  Receipt Date: 20120731
  Transmission Date: 20120928
  Serious: Yes (Other)
  Sender: FDA-Public Use
  Company Number: PHHY2012FR051485

PATIENT
  Sex: Female
  Weight: 46 kg

DRUGS (3)
  1. TASIGNA [Suspect]
     Dosage: 400 MG, DAILY
     Route: 048
  2. TASIGNA [Suspect]
     Indication: CHRONIC MYELOID LEUKAEMIA
     Dosage: 800 MG, DAILY
     Route: 048
     Dates: start: 20111012
  3. TASIGNA [Suspect]
     Dosage: 600 MG, DAILY
     Route: 048

REACTIONS (7)
  - ASTHENIA [None]
  - NASOPHARYNGITIS [None]
  - HYPOTHYROIDISM [None]
  - HYPERCHOLESTEROLAEMIA [None]
  - EYELID OEDEMA [None]
  - CONSTIPATION [None]
  - FACE OEDEMA [None]
